FAERS Safety Report 12335999 (Version 1)
Quarter: 2016Q2

REPORT INFORMATION
  Report Type: Spontaneous
  Country: US (occurrence: US)
  Receive Date: 20160505
  Receipt Date: 20160505
  Transmission Date: 20160815
  Serious: Yes (Other)
  Sender: FDA-Public Use
  Company Number: US-DRREDDYS-USA/USA/16/0079260

PATIENT
  Age: 19 Year
  Sex: Female
  Weight: 42 kg

DRUGS (10)
  1. LEVOFLOXACIN TABLETS [Suspect]
     Active Substance: LEVOFLOXACIN
     Indication: TUBERCULOSIS
     Route: 065
  2. PYRAZINAMIDE. [Interacting]
     Active Substance: PYRAZINAMIDE
     Indication: TUBERCULOSIS
  3. METHYL PREDNISOLONE [Interacting]
     Active Substance: METHYLPREDNISOLONE
     Indication: SYSTEMIC LUPUS ERYTHEMATOSUS
     Route: 065
  4. CYCLOSERINE. [Interacting]
     Active Substance: CYCLOSERINE
     Indication: TUBERCULOSIS
  5. AZATHIOPRINE. [Interacting]
     Active Substance: AZATHIOPRINE
     Indication: SYSTEMIC LUPUS ERYTHEMATOSUS
  6. METHYL PREDNISOLONE [Interacting]
     Active Substance: METHYLPREDNISOLONE
     Route: 065
  7. KANAMYCIN [Interacting]
     Active Substance: KANAMYCIN\KANAMYCIN A SULFATE
     Indication: TUBERCULOSIS
  8. PARA-AMINOSALICYLIC ACID [Interacting]
     Active Substance: AMINOSALICYLIC ACID
     Indication: TUBERCULOSIS
  9. CLOFAZIMINE [Interacting]
     Active Substance: CLOFAZIMINE
     Indication: TUBERCULOSIS
  10. HYDROXYCHLOROQUINE [Interacting]
     Active Substance: HYDROXYCHLOROQUINE
     Indication: SYSTEMIC LUPUS ERYTHEMATOSUS
     Route: 065

REACTIONS (12)
  - Drug interaction [Unknown]
  - Systemic lupus erythematosus [Recovered/Resolved]
  - Rash [Recovered/Resolved]
  - Toxicity to various agents [Unknown]
  - Gait disturbance [Recovered/Resolved]
  - Platelet count decreased [Recovered/Resolved]
  - Osteonecrosis [Recovered/Resolved]
  - Haemoglobin decreased [Recovered/Resolved]
  - Pain in extremity [Recovered/Resolved]
  - Butterfly rash [Recovered/Resolved]
  - Alopecia [Recovered/Resolved]
  - Arthralgia [Recovered/Resolved]
